FAERS Safety Report 5774123-9 (Version None)
Quarter: 2008Q2

REPORT INFORMATION
  Report Type: 
  Country: None (occurrence: None)
  Receive Date: 20080616
  Receipt Date: 20080610
  Transmission Date: 20081010
  Serious: Yes (Other)
  Sender: FDA-Public Use
  Company Number: FI-ASTRAZENECA-2008SE02808

PATIENT
  Age: 861 Day
  Sex: Male

DRUGS (6)
  1. PULMICORT [Suspect]
     Indication: ASTHMA
     Dosage: 1-2 INHALATIONS
     Route: 055
     Dates: start: 20071214, end: 20080208
  2. PULMICORT [Suspect]
     Route: 055
     Dates: start: 20080421, end: 20080421
  3. AIROMIR [Concomitant]
     Indication: COUGH
     Dosage: 1-2 INHALATIONS 1-4 TIMES DAILY
     Route: 055
     Dates: start: 20071214
  4. AIROMIR [Concomitant]
     Indication: DYSPNOEA
     Dosage: 1-2 INHALATIONS 1-4 TIMES DAILY
     Route: 055
     Dates: start: 20071214
  5. AIROMIR [Concomitant]
     Indication: STRIDOR
     Dosage: 1-2 INHALATIONS 1-4 TIMES DAILY
     Route: 055
     Dates: start: 20071214
  6. SINGULAIR [Concomitant]

REACTIONS (3)
  - GINGIVAL HYPERPLASIA [None]
  - MOUTH HAEMORRHAGE [None]
  - ORAL MUCOSA EROSION [None]
